FAERS Safety Report 7715939-9 (Version None)
Quarter: 2011Q3

REPORT INFORMATION
  Report Type: 
  Country: None (occurrence: None)
  Receive Date: 20110823
  Receipt Date: 20110811
  Transmission Date: 20111222
  Serious: Yes (Death)
  Sender: FDA-Public Use
  Company Number: AX-2011-000390

PATIENT

DRUGS (1)
  1. PHOTOFRIN (PORFIMER SODIUM) POWDER FOR SOLUTION FOR INJECTION [Suspect]
     Indication: OESOPHAGEAL CARCINOMA
     Dosage: 2 MG/KG, SINGLE, INTRAVENOUS
     Route: 042

REACTIONS (1)
  - GASTROINTESTINAL HAEMORRHAGE [None]
